FAERS Safety Report 4980682-6 (Version None)
Quarter: 2006Q2

REPORT INFORMATION
  Report Type: 
  Country: None (occurrence: None)
  Receive Date: 20060424
  Receipt Date: 20060414
  Transmission Date: 20061013
  Serious: Yes (Other)
  Sender: FDA-Public Use
  Company Number: ES-MERCK-0604ESP00025

PATIENT
  Age: 43 Year
  Sex: Female

DRUGS (1)
  1. ALDOMET [Suspect]
     Indication: HYPERTENSION
     Route: 065

REACTIONS (3)
  - ABORTION SPONTANEOUS [None]
  - DRUG EXPOSURE DURING PREGNANCY [None]
  - HEPATITIS ACUTE [None]
